FAERS Safety Report 19752799 (Version 1)
Quarter: 2021Q3

REPORT INFORMATION
  Report Type: Spontaneous
  Country: None (occurrence: JP)
  Receive Date: 20210827
  Receipt Date: 20210827
  Transmission Date: 20211014
  Serious: Yes (Death, Other)
  Sender: FDA-Public Use
  Company Number: JP-CHEPLA-2021001511

PATIENT
  Age: 63 Year
  Sex: Male

DRUGS (2)
  1. GANCICLOVIR. [Suspect]
     Active Substance: GANCICLOVIR
     Indication: PROSTATE CANCER
     Dosage: INTRAVENOUS INFUSION OF 5 MG/KG GCV TWICE DAILY FROM DAY 1 TO DAY 14 FOR ONE COURSE
     Route: 042
  2. GANCICLOVIR. [Suspect]
     Active Substance: GANCICLOVIR
     Indication: PROSTATE CANCER
     Dosage: INTRAVENOUS INFUSION 5 MG/KG GCV TWICE DAILY FROM DAY 15 TO DAY 28 FOR SECOND COURSE
     Route: 042

REACTIONS (3)
  - Product use in unapproved indication [Unknown]
  - Pulmonary embolism [Fatal]
  - Thrombocytopenia [Recovered/Resolved]
